FAERS Safety Report 6806175-9 (Version None)
Quarter: 2010Q2

REPORT INFORMATION
  Report Type: 
  Country: None (occurrence: None)
  Receive Date: 20100629
  Receipt Date: 20080307
  Transmission Date: 20101027
  Serious: No
  Sender: FDA-Public Use
  Company Number: US-PFIZER INC-2007107084

PATIENT
  Sex: Male

DRUGS (3)
  1. TIKOSYN [Suspect]
  2. NABUMETONE [Concomitant]
  3. PROPOXYPHENE [Concomitant]

REACTIONS (1)
  - ATRIAL FIBRILLATION [None]
